FAERS Safety Report 6211854-0 (Version None)
Quarter: 2009Q2

REPORT INFORMATION
  Report Type: 
  Country: None (occurrence: None)
  Receive Date: 20090528
  Receipt Date: 20090512
  Transmission Date: 20091009
  Serious: Yes (Other)
  Sender: FDA-Public Use
  Company Number: B0575131A

PATIENT
  Sex: 0

DRUGS (3)
  1. MELPHALAN (FORMULATION UNKNOWN) (GENERIC) (MELPHALAN) [Suspect]
     Indication: INTRAOCULAR RETINOBLASTOMA
     Dosage: INTRAVENOUS INFUSION
     Route: 042
  2. TOPOTECAN HYDROCHLORIDE (FORMULATION UNKNOWN) (GENERIC) (TOPOTECAN) [Suspect]
     Indication: INTRAOCULAR RETINOBLASTOMA
  3. CARBOPLATIN [Suspect]
     Indication: INTRAOCULAR RETINOBLASTOMA

REACTIONS (1)
  - LEUKOPENIA [None]
